FAERS Safety Report 7700563-4 (Version None)
Quarter: 2011Q3

REPORT INFORMATION
  Report Type: 
  Country: None (occurrence: None)
  Receive Date: 20110822
  Receipt Date: 20110811
  Transmission Date: 20111222
  Serious: Yes (Other)
  Sender: FDA-Public Use
  Company Number: GB-JNJFOC-20110805841

PATIENT
  Age: 39 Year
  Sex: Male
  Weight: 80 kg

DRUGS (7)
  1. NICOTINE [Suspect]
     Route: 062
  2. NICOTINE [Suspect]
     Indication: NICOTINE DEPENDENCE
     Route: 062
     Dates: start: 20110601, end: 20110601
  3. PROCYCLIDINE HYDROCHLORIDE 2MG TAB [Concomitant]
     Indication: PRODUCT USED FOR UNKNOWN INDICATION
     Route: 048
  4. CARBAMAZEPINE [Concomitant]
     Indication: MOOD SWINGS
     Route: 048
  5. NICOTINE [Suspect]
     Indication: NICOTINE DEPENDENCE
     Route: 055
     Dates: start: 20110601, end: 20110601
  6. LANSOPRAZOLE [Concomitant]
     Indication: DYSPEPSIA
     Route: 048
  7. SULPIRIDE [Concomitant]
     Indication: SCHIZOPHRENIA
     Route: 048

REACTIONS (4)
  - ANXIETY [None]
  - PSYCHOTIC DISORDER [None]
  - STRESS [None]
  - OVERDOSE [None]
